FAERS Safety Report 16083272 (Version 1)
Quarter: 2019Q1

REPORT INFORMATION
  Report Type: Spontaneous
  Country: IE (occurrence: IE)
  Receive Date: 20190318
  Receipt Date: 20190318
  Transmission Date: 20190418
  Serious: Yes (Hospitalization, Other)
  Sender: FDA-Public Use
  Company Number: IE-MICRO LABS LIMITED-ML2019-00568

PATIENT
  Age: 52 Year
  Sex: Female
  Weight: 69 kg

DRUGS (8)
  1. ELTROXIN [Concomitant]
     Active Substance: LEVOTHYROXINE
     Indication: HYPOTHYROIDISM
  2. MENOPACE [Concomitant]
  3. GALFER [Concomitant]
     Active Substance: IRON
     Indication: ANAEMIA
  4. VENTOLIN [Concomitant]
     Active Substance: ALBUTEROL SULFATE
     Dosage: 100 MICROGRAM 2 PUFFS UP TO 4 TIMES DAILY IF NEEDED
  5. VALSARTAN. [Concomitant]
     Active Substance: VALSARTAN
     Indication: HYPERTENSION
  6. ASPIRIN. [Concomitant]
     Active Substance: ASPIRIN
  7. AMOXICILLIN/CLAVULANIC ACID [Suspect]
     Active Substance: AMOXICILLIN\CLAVULANIC ACID
     Indication: TOOTH INFECTION
     Dosage: 625MG TDS
     Route: 048
     Dates: start: 20190204, end: 20190208
  8. CRESTOR [Concomitant]
     Active Substance: ROSUVASTATIN CALCIUM
     Indication: HYPERCHOLESTEROLAEMIA

REACTIONS (2)
  - Drug-induced liver injury [Recovered/Resolved]
  - Liver function test abnormal [Recovered/Resolved]

NARRATIVE: CASE EVENT DATE: 20190213
